FAERS Safety Report 10598555 (Version 2)
Quarter: 2015Q1

REPORT INFORMATION
  Report Type: Spontaneous
  Country: IN (occurrence: IN)
  Receive Date: 20141121
  Receipt Date: 20150129
  Transmission Date: 20150720
  Serious: Yes (Hospitalization, Congenital Anomaly)
  Sender: FDA-Public Use
  Company Number: IN-ABBVIE-14P-078-1309898-00

PATIENT
  Age: 3 Month
  Sex: Male

DRUGS (1)
  1. SODIUM VALPROATE [Suspect]
     Active Substance: VALPROATE SODIUM
     Indication: MATERNAL EXPOSURE TIMING UNSPECIFIED
     Route: 064

REACTIONS (32)
  - Foetal anticonvulsant syndrome [Unknown]
  - Dyspnoea [Unknown]
  - Heart rate increased [Unknown]
  - Dysmorphism [Unknown]
  - Low set ears [Unknown]
  - Hypospadias [Unknown]
  - Cardiac murmur [Unknown]
  - Use of accessory respiratory muscles [Unknown]
  - Skin turgor decreased [Unknown]
  - Congenital hand malformation [Unknown]
  - Madarosis [Unknown]
  - Congenital oral malformation [Unknown]
  - Rales [Unknown]
  - Congenital pulmonary hypertension [Unknown]
  - Skin malformation [Unknown]
  - Foetal exposure during pregnancy [Unknown]
  - Respiratory rate increased [Unknown]
  - Craniosynostosis [Unknown]
  - Underweight [Unknown]
  - Congenital foot malformation [Unknown]
  - Patent ductus arteriosus [Unknown]
  - Prominent epicanthal folds [Unknown]
  - Ventricular septal defect [Unknown]
  - Pyrexia [Unknown]
  - Deformity of orbit [Unknown]
  - Skull malformation [Unknown]
  - Nose deformity [Unknown]
  - Heart sounds abnormal [Unknown]
  - Congenital hepatomegaly [Unknown]
  - Cardiac failure congestive [Unknown]
  - Failure to thrive [Unknown]
  - Atrial septal defect [Unknown]
